FAERS Safety Report 6241459-7 (Version None)
Quarter: 2009Q2

REPORT INFORMATION
  Report Type: 
  Country: None (occurrence: None)
  Receive Date: 20090623
  Receipt Date: 20030402
  Transmission Date: 20091009
  Serious: Yes (Hospitalization)
  Sender: FDA-Public Use
  Company Number: BR-ROCHE-335164

PATIENT
  Sex: Male
  Weight: 43.5 kg

DRUGS (31)
  1. DACLIZUMAB [Suspect]
     Route: 042
     Dates: start: 20030226, end: 20030226
  2. DACLIZUMAB [Suspect]
     Route: 042
     Dates: start: 20030312
  3. MYCOPHENOLATE MOFETIL [Suspect]
     Dosage: FORM REPORTED: DRAG
     Route: 048
     Dates: start: 20030226
  4. MYCOPHENOLATE MOFETIL [Suspect]
     Route: 048
     Dates: start: 20030329
  5. MYCOPHENOLATE MOFETIL [Suspect]
     Route: 048
     Dates: start: 20030709
  6. CYCLOSPORINE [Suspect]
     Dosage: DRUG REPORTED: CYCLOSPORINE; FORM: DRAG
     Route: 048
     Dates: start: 20030226
  7. CYCLOSPORINE [Suspect]
     Dosage: 100 MG MORNING, 75 MG AT NIGHT.
     Route: 048
     Dates: start: 20030327
  8. CYCLOSPORINE [Suspect]
     Route: 048
     Dates: start: 20030528
  9. CYCLOSPORINE [Suspect]
     Dosage: DRUG REPORTED: CYCLOSPORINE
     Route: 048
     Dates: start: 20031127
  10. CYCLOSPORINE [Suspect]
     Route: 048
     Dates: start: 20040107
  11. CYCLOSPORINE [Suspect]
     Route: 048
     Dates: start: 20050610
  12. PREDNISONE [Suspect]
     Dosage: FORM: DRAG
     Route: 048
     Dates: start: 20030226
  13. PREDNISONE [Suspect]
     Route: 048
     Dates: start: 20030301
  14. PREDNISONE [Suspect]
     Route: 048
     Dates: start: 20030312
  15. PREDNISONE [Suspect]
     Route: 048
     Dates: start: 20030319
  16. PREDNISONE [Suspect]
     Route: 048
     Dates: start: 20030327
  17. PREDNISONE [Suspect]
     Route: 048
     Dates: start: 20030329
  18. PREDNISONE [Suspect]
     Route: 048
     Dates: start: 20030528
  19. PREDNISONE [Suspect]
     Route: 048
     Dates: start: 20040821
  20. PREDNISONE [Suspect]
     Route: 048
     Dates: start: 20050610
  21. METHYLPREDNISOLONE [Suspect]
     Dosage: DRUG REPORTED: METHYPREDNISOLONE
     Route: 042
     Dates: start: 20030226
  22. METHYLPREDNISOLONE [Suspect]
     Route: 042
     Dates: start: 20030227, end: 20030228
  23. CAPTOPRIL [Concomitant]
     Dosage: FORM REPORTED: DRAG
     Route: 048
     Dates: start: 20030301, end: 20030329
  24. CEFOTAXIME [Concomitant]
     Route: 042
     Dates: start: 20030226, end: 20030303
  25. CEFOTAXIME [Concomitant]
     Route: 042
     Dates: start: 20030329
  26. CLONIDINE [Concomitant]
     Dosage: FORM REPORTED: DRAG
     Route: 048
     Dates: start: 20030226
  27. CLONIDINE [Concomitant]
     Route: 048
     Dates: start: 20030327, end: 20030327
  28. CLONIDINE [Concomitant]
     Route: 048
     Dates: end: 20030329
  29. MINOXIDIL [Concomitant]
     Dosage: FORM REPORTED: DRAG
     Route: 048
     Dates: start: 20030302
  30. NIFEDIPINE [Concomitant]
     Dosage: FORM REPORTED: DRAG
     Route: 048
     Dates: start: 20030227, end: 20030329
  31. RANITIDINE [Concomitant]
     Route: 048
     Dates: start: 20030228, end: 20040303

REACTIONS (3)
  - DEHYDRATION [None]
  - DIARRHOEA [None]
  - HEPATITIS [None]
